FAERS Safety Report 5838593-X (Version None)
Quarter: 2008Q3

REPORT INFORMATION
  Report Type: 
  Country: None (occurrence: None)
  Receive Date: 20080808
  Receipt Date: 20080523
  Transmission Date: 20090109
  Serious: No
  Sender: FDA-Public Use
  Company Number: A0727721A

PATIENT
  Age: 55 Year
  Sex: Male

DRUGS (4)
  1. ALTABAX [Suspect]
     Indication: IMPETIGO
     Route: 061
  2. CEPHALEXIN [Concomitant]
  3. TIMOLOL MALEATE [Concomitant]
  4. ALLERGY SHOTS [Concomitant]

REACTIONS (4)
  - APPLICATION SITE DISCHARGE [None]
  - APPLICATION SITE VESICLES [None]
  - OROPHARYNGEAL BLISTERING [None]
  - SWELLING [None]
